FAERS Safety Report 5719053-3 (Version None)
Quarter: 2008Q2

REPORT INFORMATION
  Report Type: 
  Country: None (occurrence: None)
  Receive Date: 20080423
  Receipt Date: 20080416
  Transmission Date: 20081010
  Serious: Yes (Life-Threatening, Hospitalization, Disabling)
  Sender: FDA-Public Use
  Company Number: 2008-01319

PATIENT
  Age: 61 Year
  Sex: Female
  Weight: 58 kg

DRUGS (10)
  1. VELCADE [Suspect]
     Indication: DRUG USE FOR UNKNOWN INDICATION
     Dosage: 2.1 MG,
     Dates: start: 20061101, end: 20070401
  2. VELCADE [Suspect]
     Indication: DRUG USE FOR UNKNOWN INDICATION
     Dosage: 2.1 MG,
     Dates: start: 20071101, end: 20071201
  3. VELCADE [Suspect]
     Indication: DRUG USE FOR UNKNOWN INDICATION
     Dosage: 2.1 MG,
     Dates: start: 20080110
  4. THALIDOMIDE [Suspect]
     Indication: DRUG USE FOR UNKNOWN INDICATION
     Dates: start: 20061101, end: 20070401
  5. THALIDOMIDE [Suspect]
     Indication: DRUG USE FOR UNKNOWN INDICATION
     Dates: start: 20070101
  6. REVLIMID [Suspect]
     Indication: DRUG USE FOR UNKNOWN INDICATION
     Dates: start: 20070101
  7. DEXAMETHASONE [Concomitant]
  8. ZOMETA [Concomitant]
  9. MELPHALAN [Concomitant]
  10. ADRIAMYCIN PFS [Concomitant]

REACTIONS (14)
  - BICYTOPENIA [None]
  - CARDIAC FAILURE [None]
  - CHEST PAIN [None]
  - CHEST X-RAY ABNORMAL [None]
  - CHILLS [None]
  - DYSPNOEA [None]
  - HAEMOPTYSIS [None]
  - HYPOAESTHESIA [None]
  - LUNG DISORDER [None]
  - NEUROPATHY PERIPHERAL [None]
  - PULMONARY ALVEOLAR HAEMORRHAGE [None]
  - PYREXIA [None]
  - RESPIRATORY DISTRESS [None]
  - THROMBOCYTOPENIA [None]
